FAERS Safety Report 4875373-6 (Version None)
Quarter: 2006Q1

REPORT INFORMATION
  Report Type: 
  Country: None (occurrence: None)
  Receive Date: 20060109
  Receipt Date: 20051215
  Transmission Date: 20060701
  Serious: Yes (Disabling, Other)
  Sender: FDA-Public Use
  Company Number: US-MERCK-0512USA02335

PATIENT
  Age: 44 Year
  Sex: Male

DRUGS (6)
  1. VYTORIN [Suspect]
     Indication: BLOOD CHOLESTEROL INCREASED
     Route: 048
     Dates: start: 20050815, end: 20051207
  2. DIOVAN [Concomitant]
     Route: 065
     Dates: start: 20050815
  3. NEXIUM [Concomitant]
     Route: 065
     Dates: start: 20050815
  4. VITAMINS (UNSPECIFIED) [Concomitant]
     Route: 065
     Dates: end: 20051207
  5. ASCORBIC ACID [Concomitant]
     Route: 065
     Dates: end: 20051207
  6. VITAMIN E [Concomitant]
     Route: 065
     Dates: end: 20051207

REACTIONS (3)
  - BLOOD URINE PRESENT [None]
  - MUSCLE SPASMS [None]
  - MYALGIA [None]
